FAERS Safety Report 9202093 (Version 3)
Quarter: 2013Q2

REPORT INFORMATION
  Report Type: Spontaneous
  Country: US (occurrence: US)
  Receive Date: 20130401
  Receipt Date: 20130514
  Transmission Date: 20140414
  Serious: Yes (Hospitalization)
  Sender: FDA-Public Use
  Company Number: US-GLAXOSMITHKLINE-A0770008A

PATIENT
  Age: 60 Year
  Sex: Female

DRUGS (2)
  1. LAMOTRIGINE [Suspect]
     Indication: BIPOLAR DISORDER
     Route: 048
     Dates: start: 20051219
  2. LAMICTAL [Suspect]
     Indication: PRODUCT USED FOR UNKNOWN INDICATION
     Dosage: 25MG UNKNOWN
     Dates: start: 20051212

REACTIONS (8)
  - Femur fracture [Unknown]
  - Pneumonia [Unknown]
  - Drug ineffective [Unknown]
  - Tremor [Unknown]
  - Overdose [Unknown]
  - Vomiting [Unknown]
  - Decreased appetite [Unknown]
  - Nervousness [Unknown]
